FAERS Safety Report 8393925-6 (Version None)
Quarter: 2012Q2

REPORT INFORMATION
  Report Type: 
  Country: None (occurrence: None)
  Receive Date: 20120530
  Receipt Date: 20120518
  Transmission Date: 20120825
  Serious: Yes (Hospitalization)
  Sender: FDA-Public Use
  Company Number: JP-AMGEN-JPNSP2012032494

PATIENT
  Sex: Female

DRUGS (1)
  1. ENBREL [Suspect]
     Indication: PRODUCT USED FOR UNKNOWN INDICATION
     Dosage: 25 MG, FREQUENCY UNKNOWN
     Route: 058

REACTIONS (4)
  - FALL [None]
  - PAIN [None]
  - DRUG EFFECT DECREASED [None]
  - FRACTURE [None]
